FAERS Safety Report 6182377-2 (Version None)
Quarter: 2009Q2

REPORT INFORMATION
  Report Type: 
  Country: None (occurrence: None)
  Receive Date: 20090505
  Receipt Date: 20090505
  Transmission Date: 20091009
  Serious: Yes (Hospitalization)
  Sender: FDA-Public Use
  Company Number: None

PATIENT
  Sex: Female
  Weight: 118.7 kg

DRUGS (4)
  1. BUSULFAN [Suspect]
     Dosage: 777.6 MG
     Dates: end: 20090227
  2. CYTARABINE [Suspect]
     Dosage: 33920 MG
     Dates: end: 20090103
  3. ETOPOSIDE [Suspect]
     Dosage: 6073 MG
     Dates: end: 20090228
  4. G-CSF (FILGRASTIM, AMGEN) [Suspect]
     Dosage: 15200 MCG
     Dates: end: 20090309

REACTIONS (4)
  - COUGH [None]
  - HAEMORRHAGE [None]
  - MASS [None]
  - PERICARDIAL EFFUSION [None]
